FAERS Safety Report 12985741 (Version 1)
Quarter: 2016Q4

REPORT INFORMATION
  Report Type: Spontaneous
  Country: US (occurrence: US)
  Receive Date: 20161130
  Receipt Date: 20161130
  Transmission Date: 20170207
  Serious: Yes (Other)
  Sender: FDA-Public Use
  Company Number: US-SHIRE-US201617736

PATIENT
  Sex: Female

DRUGS (1)
  1. VYVANSE [Suspect]
     Active Substance: LISDEXAMFETAMINE DIMESYLATE
     Indication: ATTENTION DEFICIT/HYPERACTIVITY DISORDER
     Dosage: 10 MG, UNKNOWN
     Route: 048
     Dates: start: 2016

REACTIONS (6)
  - Malaise [Not Recovered/Not Resolved]
  - Personality change [Not Recovered/Not Resolved]
  - Acne [Not Recovered/Not Resolved]
  - Libido disorder [Not Recovered/Not Resolved]
  - Insomnia [Not Recovered/Not Resolved]
  - Educational problem [Not Recovered/Not Resolved]

NARRATIVE: CASE EVENT DATE: 2016
